FAERS Safety Report 4863475-X (Version None)
Quarter: 2005Q4

REPORT INFORMATION
  Report Type: 
  Country: None (occurrence: None)
  Receive Date: 20051222
  Receipt Date: 20050221
  Transmission Date: 20060501
  Serious: No
  Sender: FDA-Public Use
  Company Number: US-GLAXOSMITHKLINE-A0546503A

PATIENT
  Age: 54 Year
  Sex: Female

DRUGS (7)
  1. FLONASE [Suspect]
     Dosage: 2SPR PER DAY
     Route: 045
     Dates: start: 20020101
  2. ADVAIR DISKUS 250/50 [Concomitant]
  3. HYDROCHLOROTHIAZIDE [Concomitant]
  4. PREMPRO [Concomitant]
  5. ACIPHEX [Concomitant]
  6. FOLIC ACID [Concomitant]
  7. ALTACE [Concomitant]

REACTIONS (2)
  - COUGH [None]
  - PHARMACEUTICAL PRODUCT COMPLAINT [None]
